FAERS Safety Report 7255490-6 (Version None)
Quarter: 2011Q1

REPORT INFORMATION
  Report Type: 
  Country: None (occurrence: None)
  Receive Date: 20110129
  Receipt Date: 20100331
  Transmission Date: 20110831
  Serious: No
  Sender: FDA-Public Use
  Company Number: US-ABBOTT-10P-163-0635566-00

PATIENT
  Sex: Female
  Weight: 59.928 kg

DRUGS (2)
  1. HUMIRA [Suspect]
     Indication: PSORIASIS
     Dates: start: 20091224
  2. METHOTREXATE [Suspect]
     Indication: PRODUCT USED FOR UNKNOWN INDICATION

REACTIONS (4)
  - PALPITATIONS [None]
  - PANIC ATTACK [None]
  - TREMOR [None]
  - LIVER FUNCTION TEST ABNORMAL [None]
